FAERS Safety Report 14345682 (Version 1)
Quarter: 2017Q4

REPORT INFORMATION
  Report Type: Spontaneous
  Country: US (occurrence: US)
  Receive Date: 20171230
  Receipt Date: 20171230
  Transmission Date: 20180321
  Serious: Yes (Death)
  Sender: FDA-Public Use
  Company Number: None

PATIENT
  Age: 60 Year
  Sex: Female

DRUGS (2)
  1. PROCRIT [Suspect]
     Active Substance: ERYTHROPOIETIN
     Indication: MALAISE
     Route: 058
     Dates: start: 20170913, end: 20171109
  2. CYCLOPHOSPHAMIDE 50MG EPOCRATES [Suspect]
     Active Substance: CYCLOPHOSPHAMIDE
     Indication: MALAISE
     Route: 048
     Dates: start: 20171018, end: 20171116

REACTIONS (1)
  - Death [None]

NARRATIVE: CASE EVENT DATE: 20171201
